FAERS Safety Report 6426193-2 (Version None)
Quarter: 2009Q4

REPORT INFORMATION
  Report Type: 
  Country: None (occurrence: None)
  Receive Date: 20091104
  Receipt Date: 20091026
  Transmission Date: 20100525
  Serious: No
  Sender: FDA-Public Use
  Company Number: US-JNJFOC-20091008253

PATIENT
  Sex: Female
  Weight: 122.47 kg

DRUGS (22)
  1. DURAGESIC-100 [Suspect]
     Indication: PAIN
     Route: 062
  2. LOXAPINE [Concomitant]
     Indication: SCHIZOPHRENIA
     Route: 048
  3. LEVOTHYROXINE SODIUM [Concomitant]
     Indication: THYROID DISORDER
     Route: 048
  4. BENADRYL [Concomitant]
     Indication: SLEEP DISORDER
     Route: 048
  5. TOPAMAX [Concomitant]
     Indication: HEADACHE
     Route: 048
  6. OPANA ER [Concomitant]
     Indication: DETOXIFICATION
     Route: 048
  7. TEGRETOL [Concomitant]
     Indication: CONVULSION
     Route: 048
  8. FLEXERIL [Concomitant]
     Indication: MYALGIA
     Route: 048
  9. ZOLOFT [Concomitant]
     Indication: DEPRESSION
     Route: 048
  10. LISINOPRIL [Concomitant]
     Indication: BLOOD PRESSURE
     Route: 048
  11. ZETIA [Concomitant]
     Indication: BLOOD CHOLESTEROL
     Route: 048
  12. ACIPHEX [Concomitant]
     Indication: GASTROOESOPHAGEAL REFLUX DISEASE
     Route: 048
  13. SINGULAIR [Concomitant]
     Indication: ASTHMA
     Route: 048
  14. HYDROCODONE [Concomitant]
     Indication: BREAKTHROUGH PAIN
     Dosage: 10/500 MG AS NEEDED
     Route: 048
  15. CELEBREX [Concomitant]
     Indication: ARTHRITIS
     Route: 048
  16. CARBIDOPA-LEVODOPA [Concomitant]
     Indication: PARKINSON'S DISEASE
     Dosage: 25/100 MG
     Route: 048
  17. DEPAKOTE [Concomitant]
     Indication: DRUG THERAPY
     Route: 048
  18. SEROQUEL [Concomitant]
     Route: 048
  19. SEROQUEL [Concomitant]
     Indication: SLEEP DISORDER
     Route: 048
  20. LORTAB [Concomitant]
     Indication: PAIN
     Dosage: 10/500 MG
     Route: 048
  21. TRAZODONE [Concomitant]
     Indication: DEPRESSION
     Route: 048
  22. CLONAZEPAM [Concomitant]
     Indication: PANIC ATTACK
     Route: 048

REACTIONS (4)
  - FATIGUE [None]
  - INAPPROPRIATE SCHEDULE OF DRUG ADMINISTRATION [None]
  - PRODUCT QUALITY ISSUE [None]
  - SOMNOLENCE [None]
